FAERS Safety Report 5999849-3 (Version None)
Quarter: 2008Q4

REPORT INFORMATION
  Report Type: 
  Country: None (occurrence: None)
  Receive Date: 20081211
  Receipt Date: 20080731
  Transmission Date: 20090506
  Serious: No
  Sender: FDA-Public Use
  Company Number: US024239

PATIENT
  Age: 65 Year
  Sex: Female

DRUGS (1)
  1. TREANDA [Suspect]
     Dosage: 150 MG INTRAVENOUS
     Route: 042

REACTIONS (1)
  - INFUSION SITE PAIN [None]
